FAERS Safety Report 10693803 (Version 2)
Quarter: 2015Q2

REPORT INFORMATION
  Report Type: Spontaneous
  Country: US (occurrence: US)
  Receive Date: 20150106
  Receipt Date: 20150608
  Transmission Date: 20150821
  Serious: Yes (Other)
  Sender: FDA-Public Use
  Company Number: US-BAYER-2015-001376

PATIENT
  Age: 19 Year
  Sex: Female
  Weight: 56.69 kg

DRUGS (1)
  1. MIRENA [Suspect]
     Active Substance: LEVONORGESTREL
     Indication: CONTRACEPTION
     Dosage: 20 MCG/24HR, CONT
     Route: 015
     Dates: start: 200901, end: 201108

REACTIONS (13)
  - Injury [None]
  - Emotional distress [None]
  - Pregnancy with contraceptive device [None]
  - Embedded device [None]
  - Vaginal infection [None]
  - Depression [None]
  - Pelvic inflammatory disease [None]
  - Drug ineffective [None]
  - Abdominal pain upper [None]
  - Pain [None]
  - Amenorrhoea [None]
  - Anxiety [None]
  - Device issue [None]

NARRATIVE: CASE EVENT DATE: 2009
